FAERS Safety Report 5029390-6 (Version None)
Quarter: 2006Q2

REPORT INFORMATION
  Report Type: 
  Country: None (occurrence: None)
  Receive Date: 20060614
  Receipt Date: 20060530
  Transmission Date: 20061013
  Serious: Yes (Hospitalization)
  Sender: FDA-Public Use
  Company Number: 2006US001145

PATIENT
  Age: 31 Year
  Sex: Male

DRUGS (9)
  1. PROGRAF [Suspect]
     Indication: PROPHYLAXIS AGAINST TRANSPLANT REJECTION
     Dosage: 0.5 MG, BID, ORAL
     Route: 048
  2. MYCOPHENOLATE MOFETIL [Suspect]
     Indication: PROPHYLAXIS AGAINST TRANSPLANT REJECTION
     Dosage: 1500 MG, BID, ORAL; SEE IMAGE
     Route: 048
     Dates: start: 20050909
  3. MYCOPHENOLATE MOFETIL [Suspect]
     Indication: PROPHYLAXIS AGAINST TRANSPLANT REJECTION
     Dosage: 1500 MG, BID, ORAL; SEE IMAGE
     Route: 048
     Dates: start: 20060501
  4. CORTICOSTEROID NOS(CORTICOSTEROID NOS) [Suspect]
     Indication: PROPHYLAXIS AGAINST TRANSPLANT REJECTION
  5. COZAAR [Concomitant]
  6. SINGULAIR [Concomitant]
  7. MAGNESIUM OXIDE (MAGNESIUM OXIDE) [Concomitant]
  8. HYDROCHLOROTHIAZIDE [Concomitant]
  9. MULTIVITAMIN (VITAMIN NOS) [Concomitant]

REACTIONS (5)
  - ESCHERICHIA URINARY TRACT INFECTION [None]
  - HYDRONEPHROSIS [None]
  - PYELONEPHRITIS [None]
  - SEPSIS [None]
  - SINUS CONGESTION [None]
